FAERS Safety Report 7989039-7 (Version None)
Quarter: 2011Q4

REPORT INFORMATION
  Report Type: 
  Country: None (occurrence: None)
  Receive Date: 20111219
  Receipt Date: 20111211
  Transmission Date: 20120403
  Serious: Yes (Other)
  Sender: FDA-Public Use
  Company Number: TR-TEVA-311213ISR

PATIENT
  Age: 25 Year
  Sex: Male

DRUGS (3)
  1. ETOPOSIDE [Suspect]
     Indication: MEDULLOBLASTOMA
     Dosage: 50 MG/M2 ON DAY 1
     Dates: start: 20090801, end: 20091201
  2. VINCRISTINE [Suspect]
     Indication: MEDULLOBLASTOMA
     Dosage: 1.4 MG/M2 ON DAY 1
     Dates: start: 20090801, end: 20091201
  3. CARBOPLATIN [Suspect]
     Indication: MEDULLOBLASTOMA
     Dosage: 375 MG/M2 ON DAY 1
     Dates: start: 20090801, end: 20091201

REACTIONS (3)
  - MYELODYSPLASTIC SYNDROME [None]
  - SUBARACHNOID HAEMORRHAGE [None]
  - PANCYTOPENIA [None]
